FAERS Safety Report 8780206 (Version 1)
Quarter: 2012Q4

REPORT INFORMATION
  Report Type: Spontaneous
  Country: GB (occurrence: None)
  Receive Date: 20120829
  Receipt Date: 20120829
  Transmission Date: 20130627
  Serious: Yes (Life-Threatening)
  Sender: FDA-Public Use
  Company Number: FK201202416

PATIENT
  Age: 46 Year
  Sex: Male

DRUGS (9)
  1. CEFUROXIME [Suspect]
     Dosage: Intravenous (not otherwise specified)
     Route: 042
     Dates: start: 20120803, end: 20120803
  2. AZATHIOPRINE (AZATHIOPRINE) (AZATHIOPRINE [Concomitant]
  3. OMEPRAZOLE (OMEPRAZOLE) (OMEPRAZOLE) [Concomitant]
  4. ANETHESTICS (ANESTHETICS NOS) (ANESTHETICS NOS) [Concomitant]
  5. PERINDOPRIL (PERINDOPRIL) (PERINDOPRIL) [Concomitant]
  6. PREDNISOLONE (PREDNISOLONE (PREDNISOLONE) [Concomitant]
  7. PYRIDOSTIGMINE (PYRIDOSTIGMINE) (PYRIDOSTIGMINE) [Concomitant]
  8. SIMVASTATIN (SIMVASTATIN) (SIMVASTATIN) [Concomitant]
  9. ACETYL SALICYLIC ACID [Concomitant]

REACTIONS (1)
  - Anaphylactic shock [None]
